FAERS Safety Report 9525977 (Version 1)
Quarter: 2013Q1

REPORT INFORMATION
  Report Type: Spontaneous
  Country: US (occurrence: None)
  Receive Date: 20130314
  Receipt Date: 20130314
  Transmission Date: 20140127
  Serious: No
  Sender: FDA-Public Use
  Company Number: 1301USA002118

PATIENT
  Age: 46 Year
  Sex: Female
  Weight: 87.1 kg

DRUGS (12)
  1. VICTRELIS (BOCEPREVIR) CAPSULE, 200MG [Suspect]
     Route: 048
  2. PEGINTRON [Suspect]
     Dosage: DIAL TO 0.5 ML
     Route: 058
  3. RIBAVIRIN (RIBAVIRIN) [Suspect]
     Route: 048
  4. PROCRIT (EPOETIN ALFA) [Concomitant]
  5. VITASMART B50 B COMPLEX (AMINOBENZOIC ACID, CHOLINE BITRATE, FOLIC ACID, INOSITOL, VITAMIN B COMPLEX) [Concomitant]
  6. FISH OIL CAP (OMEGA-3 MARINE TRIGLYCERIDES) [Concomitant]
  7. VITAMIN B 50 B-COMPLEX (THIAMINE) [Concomitant]
  8. MULTI TABS (MINERALS (UNSPECIFIED), VITAMINS (UNSPECIFED)) [Concomitant]
  9. MOBIC (MELOXICAM) [Concomitant]
  10. FLONASE (FLUTICASONE PROPIONATE) [Concomitant]
  11. AZOPT (BRINZOLAMIDE) (1 PERCENT) (BRINZOLAMIDE) [Concomitant]
  12. WELLBUTRIN (BUPROPION HYDROCHLORIDE) [Concomitant]

REACTIONS (1)
  - Red blood cell count decreased [None]
